FAERS Safety Report 21096093 (Version 1)
Quarter: 2022Q3

REPORT INFORMATION
  Report Type: Spontaneous
  Country: IT (occurrence: IT)
  Receive Date: 20220718
  Receipt Date: 20220718
  Transmission Date: 20221027
  Serious: Yes (Hospitalization)
  Sender: FDA-Public Use
  Company Number: IT-SEBELA IRELAND LIMITED-2022SEB00040

PATIENT
  Age: 59 Year
  Sex: Male
  Weight: 68 kg

DRUGS (1)
  1. AZATHIOPRINE [Suspect]
     Active Substance: AZATHIOPRINE
     Indication: Myasthenia gravis
     Dosage: 150 MG, 3X/DAY (3 TABLETS)
     Route: 065

REACTIONS (5)
  - Haematotoxicity [Recovered/Resolved]
  - Product administration error [Recovered/Resolved]
  - Oral herpes [Recovered/Resolved]
  - Respiratory distress [Recovered/Resolved]
  - Overdose [Recovered/Resolved]
